FAERS Safety Report 12523233 (Version 2)
Quarter: 2016Q3

REPORT INFORMATION
  Report Type: Spontaneous
  Country: US (occurrence: US)
  Receive Date: 20160702
  Receipt Date: 20160810
  Transmission Date: 20161109
  Serious: No
  Sender: FDA-Public Use
  Company Number: PHEH2016US016358

PATIENT
  Sex: Female

DRUGS (2)
  1. TYKERB [Suspect]
     Active Substance: LAPATINIB DITOSYLATE
     Indication: BREAST CANCER FEMALE
     Dosage: 5 DF, QD, 1 HOUR BEFORE OR AFTER BREAKFAST
     Route: 048
  2. CAPECITABINE. [Concomitant]
     Active Substance: CAPECITABINE
     Indication: PRODUCT USED FOR UNKNOWN INDICATION
     Dosage: 150 MG AND 500 MG
     Route: 065

REACTIONS (1)
  - Drug ineffective [Unknown]
